FAERS Safety Report 15489826 (Version 1)
Quarter: 2018Q4

REPORT INFORMATION
  Report Type: Spontaneous
  Country: US (occurrence: US)
  Receive Date: 20181011
  Receipt Date: 20181011
  Transmission Date: 20190205
  Serious: Yes (Hospitalization)
  Sender: FDA-Public Use
  Company Number: US-VERTEX PHARMACEUTICALS-2018-007251

PATIENT
  Age: 35 Year
  Sex: Male

DRUGS (4)
  1. CAYSTON [Concomitant]
     Active Substance: AZTREONAM
  2. TOBI [Concomitant]
     Active Substance: TOBRAMYCIN
  3. SYMDEKO [Suspect]
     Active Substance: IVACAFTOR\TEZACAFTOR
     Indication: CYSTIC FIBROSIS
     Dosage: 100MG/150MG TEZ/IVA AM; 150MG IVA PM
     Route: 048
     Dates: start: 201804
  4. LINEZOLID. [Suspect]
     Active Substance: LINEZOLID
     Indication: PRODUCT USED FOR UNKNOWN INDICATION
     Dosage: UNK
     Route: 048

REACTIONS (2)
  - Rash [Unknown]
  - Cystic fibrosis respiratory infection suppression [Unknown]

NARRATIVE: CASE EVENT DATE: 20180918
